FAERS Safety Report 9145705 (Version 1)
Quarter: 2013Q1

REPORT INFORMATION
  Report Type: Spontaneous
  Country: US (occurrence: US)
  Receive Date: 20130307
  Receipt Date: 20130307
  Transmission Date: 20140127
  Serious: Yes (Other)
  Sender: FDA-Public Use
  Company Number: US-BRISTOL-MYERS SQUIBB COMPANY-17428160

PATIENT
  Sex: 0

DRUGS (1)
  1. KENALOG [Suspect]

REACTIONS (1)
  - Off label use [Unknown]
